FAERS Safety Report 11289872 (Version 2)
Quarter: 2015Q3

REPORT INFORMATION
  Report Type: Spontaneous
  Country: GB (occurrence: GB)
  Receive Date: 20150721
  Receipt Date: 20150728
  Transmission Date: 20151125
  Serious: Yes (Hospitalization, Other)
  Sender: FDA-Public Use
  Company Number: GB-PFIZER INC-2015238675

PATIENT
  Age: 10 Year
  Sex: Male

DRUGS (2)
  1. PHENYTOIN. [Suspect]
     Active Substance: PHENYTOIN
     Dosage: 200 MG, DAILY, (AFTER SEVEN DAYS)
  2. PHENYTOIN. [Suspect]
     Active Substance: PHENYTOIN
     Indication: GENERALISED TONIC-CLONIC SEIZURE
     Dosage: 300 MG, DAILY

REACTIONS (14)
  - Drug-induced liver injury [Unknown]
  - Hepatosplenomegaly [Unknown]
  - Pruritus [Unknown]
  - Lymphocyte morphology abnormal [Unknown]
  - Rash [Unknown]
  - Necrosis [Unknown]
  - Liver disorder [Unknown]
  - Jaundice [Unknown]
  - Lymphadenopathy [Unknown]
  - Dermatitis exfoliative [Unknown]
  - Pyrexia [Unknown]
  - Cholestasis [Unknown]
  - Mononucleosis syndrome [Unknown]
  - Oropharyngeal pain [Unknown]
